FAERS Safety Report 22087110 (Version 2)
Quarter: 2023Q1

REPORT INFORMATION
  Report Type: Report from Study
  Country: US (occurrence: US)
  Receive Date: 20230313
  Receipt Date: 20230317
  Transmission Date: 20230417
  Serious: Yes (Other)
  Sender: FDA-Public Use
  Company Number: US-ALXN-A202204247

PATIENT
  Sex: Male

DRUGS (2)
  1. STRENSIQ [Suspect]
     Active Substance: ASFOTASE ALFA
     Dosage: UNK, 1/2 DOSING
     Route: 065
  2. STRENSIQ [Suspect]
     Active Substance: ASFOTASE ALFA
     Indication: Hypophosphatasia
     Dosage: UNK
     Route: 065
     Dates: start: 20220402, end: 20220409

REACTIONS (17)
  - Urticaria [Recovering/Resolving]
  - Blister [Recovering/Resolving]
  - Feeling abnormal [Unknown]
  - Dizziness [Unknown]
  - Injection site pustule [Recovering/Resolving]
  - Headache [Unknown]
  - Injection site rash [Unknown]
  - Sensitive skin [Unknown]
  - Scab [Unknown]
  - Rash [Unknown]
  - Injection site cellulitis [Unknown]
  - Injection site nodule [Not Recovered/Not Resolved]
  - Injection site pain [Unknown]
  - Injection site swelling [Recovering/Resolving]
  - Injection site warmth [Unknown]
  - Injection site reaction [Recovering/Resolving]
  - Injection site erythema [Not Recovered/Not Resolved]

NARRATIVE: CASE EVENT DATE: 20220402
